FAERS Safety Report 7038159-2 (Version None)
Quarter: 2010Q4

REPORT INFORMATION
  Report Type: 
  Country: None (occurrence: None)
  Receive Date: 20101011
  Receipt Date: 20101005
  Transmission Date: 20110411
  Serious: Yes (Death)
  Sender: FDA-Public Use
  Company Number: CA-MERCK-1010USA00600

PATIENT
  Age: 50 Year
  Sex: Female

DRUGS (14)
  1. ISENTRESS [Suspect]
     Route: 048
  2. LAMIVUDINE [Concomitant]
     Route: 065
  3. ACETAMINOPHEN [Concomitant]
     Route: 065
  4. ARANESP [Concomitant]
     Route: 042
  5. CALCITRIOL [Concomitant]
     Route: 065
  6. CEFAZOLIN [Concomitant]
     Route: 030
  7. DIGOXIN [Concomitant]
     Route: 065
  8. FOLIC ACID [Concomitant]
     Route: 065
  9. HYDROMORPHONE [Concomitant]
     Route: 065
  10. HYDROXYZINE [Concomitant]
     Route: 065
  11. IRON DEXTRAN [Concomitant]
     Route: 030
  12. KALETRA [Concomitant]
     Route: 065
  13. MIDODRINE HYDROCHLORIDE [Concomitant]
     Route: 065
  14. SYNTHROID [Concomitant]
     Route: 065

REACTIONS (8)
  - BLOOD BILIRUBIN INCREASED [None]
  - BLOOD CREATININE INCREASED [None]
  - BRAIN HERNIATION [None]
  - CEREBRAL HAEMORRHAGE [None]
  - COMPUTERISED TOMOGRAM [None]
  - CONFUSIONAL STATE [None]
  - STAPHYLOCOCCAL SEPSIS [None]
  - SUBDURAL HAEMATOMA [None]
